FAERS Safety Report 7227462-9 (Version None)
Quarter: 2010Q4

REPORT INFORMATION
  Report Type: 
  Country: None (occurrence: None)
  Receive Date: 20101126
  Receipt Date: 20100810
  Transmission Date: 20110411
  Serious: No
  Sender: FDA-Public Use
  Company Number: 312892

PATIENT
  Sex: Female
  Weight: 136.1 kg

DRUGS (3)
  1. VICTOZA [Suspect]
     Indication: TYPE 2 DIABETES MELLITUS
     Dosage: 0.6 MG, QD; SUBCUTANEOUS; 1.2 MG QD, SUBCUTANEOUS; 1.8 MG, QD, SUBCUTANEOUS
     Route: 058
     Dates: start: 20100806, end: 20100812
  2. VICTOZA [Suspect]
     Indication: TYPE 2 DIABETES MELLITUS
     Dosage: 0.6 MG, QD; SUBCUTANEOUS; 1.2 MG QD, SUBCUTANEOUS; 1.8 MG, QD, SUBCUTANEOUS
     Route: 058
     Dates: start: 20100813
  3. VICTOZA [Suspect]
     Indication: TYPE 2 DIABETES MELLITUS
     Dosage: 0.6 MG, QD; SUBCUTANEOUS; 1.2 MG QD, SUBCUTANEOUS; 1.8 MG, QD, SUBCUTANEOUS
     Route: 058
     Dates: start: 20100814

REACTIONS (5)
  - DECREASED APPETITE [None]
  - DIZZINESS [None]
  - ENERGY INCREASED [None]
  - NAUSEA [None]
  - VERTIGO [None]
